FAERS Safety Report 7590721-4 (Version None)
Quarter: 2011Q3

REPORT INFORMATION
  Report Type: 
  Country: None (occurrence: None)
  Receive Date: 20110705
  Receipt Date: 20110701
  Transmission Date: 20111222
  Serious: Yes (Other)
  Sender: FDA-Public Use
  Company Number: US-CEPHALON-2010005687

PATIENT
  Sex: Female
  Weight: 48 kg

DRUGS (5)
  1. GABITRIL [Suspect]
     Indication: COMPLEX PARTIAL SEIZURES
     Route: 048
     Dates: start: 20000101, end: 20070101
  2. GABITRIL [Suspect]
     Route: 048
     Dates: start: 20070101
  3. SYNTHROID [Concomitant]
     Dates: start: 20000101
  4. GABITRIL [Suspect]
     Route: 048
     Dates: start: 20070101, end: 20070101
  5. MYSOLINE [Concomitant]
     Dates: start: 19800101

REACTIONS (5)
  - SLEEP DISORDER [None]
  - SWOLLEN TONGUE [None]
  - ABDOMINAL DISCOMFORT [None]
  - FEAR [None]
  - DIARRHOEA [None]
